FAERS Safety Report 9258687 (Version 1)
Quarter: 2013Q2

REPORT INFORMATION
  Report Type: Spontaneous
  Country: US (occurrence: None)
  Receive Date: 20130425
  Receipt Date: 20130425
  Transmission Date: 20140414
  Serious: Yes (Hospitalization)
  Sender: FDA-Public Use
  Company Number: None

PATIENT
  Age: 55 Year
  Sex: Female
  Weight: 60 kg

DRUGS (10)
  1. HYDROCHLOROTHIAZIDE [Suspect]
     Indication: HYPERTENSION
     Route: 048
     Dates: start: 20120808, end: 20121005
  2. LEVETIRACETAM [Concomitant]
  3. HYDROCORTISONE [Concomitant]
  4. PSYLLIUM [Concomitant]
  5. ACETAMINOPHEN [Concomitant]
  6. LOPERAMIDE [Concomitant]
  7. LISINOPRIL [Concomitant]
  8. FENOFIBRATE [Concomitant]
  9. SIMVASTATIN [Concomitant]
  10. CALCIUM + VITAMIN D [Concomitant]

REACTIONS (4)
  - Rash maculo-papular [None]
  - Eczema [None]
  - Erythema multiforme [None]
  - Occult blood positive [None]
